FAERS Safety Report 10373024 (Version 2)
Quarter: 2014Q3

REPORT INFORMATION
  Report Type: Spontaneous
  Country: US (occurrence: US)
  Receive Date: 20140808
  Receipt Date: 20140808
  Transmission Date: 20150326
  Serious: No
  Sender: FDA-Public Use
  Company Number: US-BRISTOL-MYERS SQUIBB COMPANY-19924471

PATIENT
  Age: 56 Year
  Sex: Male

DRUGS (1)
  1. SPRYCEL [Suspect]
     Active Substance: DASATINIB
     Indication: CHRONIC MYELOID LEUKAEMIA
     Dosage: TABS?REDUCED TO 80MG?TABS 50MG:3H65370C?NOV13:ONG
     Route: 048

REACTIONS (3)
  - Flatulence [Unknown]
  - Diarrhoea [Unknown]
  - Laboratory test abnormal [Unknown]
